FAERS Safety Report 16056615 (Version 1)
Quarter: 2019Q1

REPORT INFORMATION
  Report Type: Spontaneous
  Country: JP (occurrence: JP)
  Receive Date: 20190311
  Receipt Date: 20190311
  Transmission Date: 20190418
  Serious: Yes (Other)
  Sender: FDA-Public Use
  Company Number: JP-PFIZER INC-2018381640

PATIENT
  Age: 71 Year
  Sex: Male

DRUGS (5)
  1. JZOLOFT [Suspect]
     Active Substance: SERTRALINE HYDROCHLORIDE
     Dosage: 25 MG, 1X/DAY
     Route: 048
     Dates: start: 20180815, end: 20180828
  2. JZOLOFT [Suspect]
     Active Substance: SERTRALINE HYDROCHLORIDE
     Dosage: 75 MG, DAILY
     Route: 048
     Dates: start: 20180913
  3. WARFARIN [Concomitant]
     Active Substance: WARFARIN
     Dosage: 0.5 MG, DAILY
     Route: 048
     Dates: start: 20180912, end: 20180915
  4. WARFARIN [Concomitant]
     Active Substance: WARFARIN
     Dosage: 1.5 MG, 1X/DAY
     Route: 048
     Dates: end: 20180907
  5. JZOLOFT [Suspect]
     Active Substance: SERTRALINE HYDROCHLORIDE
     Dosage: 50 MG, DAILY
     Route: 048
     Dates: start: 20180829

REACTIONS (1)
  - International normalised ratio increased [Recovered/Resolved]

NARRATIVE: CASE EVENT DATE: 20180831
